FAERS Safety Report 14350021 (Version 2)
Quarter: 2019Q1

REPORT INFORMATION
  Report Type: Spontaneous
  Country: DE (occurrence: DE)
  Receive Date: 20180104
  Receipt Date: 20190227
  Transmission Date: 20190417
  Serious: Yes (Hospitalization, Other)
  Sender: FDA-Public Use
  Company Number: DE-DRREDDYS-GER/GER/18/0095607

PATIENT
  Age: 56 Year
  Sex: Female

DRUGS (23)
  1. ABILIFY [Suspect]
     Active Substance: ARIPIPRAZOLE
     Dosage: DAILY DOSE:20 MILLIGRAM(S) EVERY DAY
     Route: 048
     Dates: start: 20130221, end: 20130222
  2. METFORMIN [Concomitant]
     Active Substance: METFORMIN HYDROCHLORIDE
     Indication: PRODUCT USED FOR UNKNOWN INDICATION
     Dosage: DAILY DOSE: 500 MG MILLIGRAM(S) EVERY DAY
     Route: 048
     Dates: start: 20130305, end: 20130314
  3. LORAZEPAM. [Concomitant]
     Active Substance: LORAZEPAM
     Indication: PRODUCT USED FOR UNKNOWN INDICATION
     Route: 048
     Dates: start: 20130222, end: 20130305
  4. LORAZEPAM. [Concomitant]
     Active Substance: LORAZEPAM
     Dosage: DAILY DOSE: 1.5 MG MILLIGRAM(S) EVERY DAY
     Route: 048
     Dates: start: 20130222, end: 20130305
  5. BIPERIDEN [Concomitant]
     Active Substance: BIPERIDEN
     Indication: PRODUCT USED FOR UNKNOWN INDICATION
     Dosage: 4 MG
     Route: 048
     Dates: start: 20130310, end: 20130320
  6. BIPERIDEN [Concomitant]
     Active Substance: BIPERIDEN
     Dosage: 2 MG
     Route: 048
     Dates: start: 20130321
  7. AMLODIPIN [Concomitant]
     Active Substance: AMLODIPINE BESYLATE
     Indication: PRODUCT USED FOR UNKNOWN INDICATION
     Dosage: UNK
     Route: 065
  8. RAMIPRIL. [Concomitant]
     Active Substance: RAMIPRIL
     Dosage: 5 MG?DAILY DOSE: 2.5 MG MILLIGRAM(S) EVERY DAY
     Route: 048
  9. ABILIFY [Suspect]
     Active Substance: ARIPIPRAZOLE
     Indication: PRODUCT USED FOR UNKNOWN INDICATION
     Route: 048
     Dates: start: 20121005, end: 20130220
  10. ABILIFY [Suspect]
     Active Substance: ARIPIPRAZOLE
     Route: 048
     Dates: start: 20130226, end: 20130403
  11. ABILIFY [Suspect]
     Active Substance: ARIPIPRAZOLE
     Route: 048
     Dates: start: 20130404
  12. CITALOPRAM [Interacting]
     Active Substance: CITALOPRAM HYDROBROMIDE
     Indication: PRODUCT USED FOR UNKNOWN INDICATION
     Dosage: DAILY DOSE: 10 MG MILLIGRAM(S) EVERY DAY
     Route: 048
     Dates: start: 20130222, end: 20130424
  13. METFORMIN [Concomitant]
     Active Substance: METFORMIN HYDROCHLORIDE
     Route: 048
     Dates: start: 20130220, end: 20130304
  14. PANTOPRAZOLE [Concomitant]
     Active Substance: PANTOPRAZOLE
     Indication: PRODUCT USED FOR UNKNOWN INDICATION
     Dosage: UNK?DAILY DOSE: 40 MG MILLIGRAM(S) EVERY DAY
     Route: 048
  15. ABILIFY [Suspect]
     Active Substance: ARIPIPRAZOLE
     Route: 048
     Dates: start: 20130223, end: 20130225
  16. LORAZEPAM. [Concomitant]
     Active Substance: LORAZEPAM
     Dosage: 1.5 - 0.5 MG/DAY
     Route: 048
     Dates: start: 20130222, end: 20130423
  17. LORAZEPAM. [Concomitant]
     Active Substance: LORAZEPAM
     Dosage: 0.25 MG
     Route: 048
     Dates: start: 20130424, end: 20130502
  18. RAMIPRIL. [Concomitant]
     Active Substance: RAMIPRIL
     Dates: start: 20130220, end: 20130314
  19. BISOPROLOL [Concomitant]
     Active Substance: BISOPROLOL
     Indication: PRODUCT USED FOR UNKNOWN INDICATION
     Dosage: UNK
     Route: 065
  20. METOPROLOL. [Suspect]
     Active Substance: METOPROLOL
     Indication: PRODUCT USED FOR UNKNOWN INDICATION
     Dosage: DAILY DOSE: 45 MG MILLIGRAM(S) EVERY DAY
     Route: 048
     Dates: end: 20130405
  21. RAMIPRIL. [Concomitant]
     Active Substance: RAMIPRIL
     Indication: PRODUCT USED FOR UNKNOWN INDICATION
     Route: 048
     Dates: start: 20130305, end: 20130314
  22. CITALOPRAM [Interacting]
     Active Substance: CITALOPRAM HYDROBROMIDE
     Route: 048
     Dates: start: 20130425
  23. ABILIFY [Suspect]
     Active Substance: ARIPIPRAZOLE
     Dosage: 15 MG MILLIGRAMS EVERY DAY
     Route: 048
     Dates: start: 20121218, end: 20130220

REACTIONS (7)
  - Rabbit syndrome [Recovered/Resolved]
  - Drug level increased [Unknown]
  - Hypertension [Unknown]
  - Drug interaction [Recovered/Resolved]
  - Agitation [Recovered/Resolved]
  - Blood pressure increased [Recovered/Resolved]
  - Restlessness [Recovered/Resolved]

NARRATIVE: CASE EVENT DATE: 20130305
